FAERS Safety Report 5963871-3 (Version None)
Quarter: 2008Q4

REPORT INFORMATION
  Report Type: 
  Country: None (occurrence: None)
  Receive Date: 20081124
  Receipt Date: 20081120
  Transmission Date: 20090506
  Serious: Yes (Life-Threatening, Hospitalization, Other)
  Sender: FDA-Public Use
  Company Number: CH-SANOFI-SYNTHELABO-F01200801597

PATIENT
  Sex: Female

DRUGS (6)
  1. CETUXIMAB [Suspect]
     Route: 041
     Dates: start: 20081001, end: 20081001
  2. BEVACIZUMAB [Suspect]
     Dosage: 2 IN 5 WEEKS
     Route: 041
     Dates: start: 20080917, end: 20080917
  3. LEUCOVORIN CALCIUM [Suspect]
     Dosage: 4 IN 5 WEEKS
     Route: 041
     Dates: start: 20081001, end: 20081001
  4. FLUOROURACIL [Suspect]
     Dosage: 4 IN 5 WEEKS
     Route: 042
     Dates: start: 20081001, end: 20081001
  5. OXALIPLATIN [Suspect]
     Indication: COLORECTAL CANCER
     Dosage: 2 IN 5 WEEKS
     Route: 041
     Dates: start: 20081001, end: 20081001
  6. IRINOTECAN HYDROCHLORIDE [Suspect]
     Dosage: 2 IN 5 WEEKS
     Route: 041
     Dates: start: 20080924, end: 20080924

REACTIONS (6)
  - DEHYDRATION [None]
  - DIARRHOEA [None]
  - HYPOVOLAEMIC SHOCK [None]
  - LACTIC ACIDOSIS [None]
  - PULMONARY EMBOLISM [None]
  - RENAL FAILURE ACUTE [None]
